FAERS Safety Report 6410529-2 (Version None)
Quarter: 2009Q4

REPORT INFORMATION
  Report Type: 
  Country: None (occurrence: None)
  Receive Date: 20091020
  Receipt Date: 20091020
  Transmission Date: 20100525
  Serious: No
  Sender: FDA-Public Use
  Company Number: None

PATIENT
  Age: 60 Year
  Sex: Female
  Weight: 56.6996 kg

DRUGS (2)
  1. ZOLOFT [Suspect]
     Indication: ANXIETY
     Dosage: 150MG DAILY
     Dates: start: 20090301, end: 20090329
  2. ZOLOFT [Suspect]
     Indication: DEPRESSION
     Dosage: 150MG DAILY
     Dates: start: 20090301, end: 20090329

REACTIONS (9)
  - ANXIETY [None]
  - DYSKINESIA [None]
  - GINGIVAL PAIN [None]
  - MUSCLE TIGHTNESS [None]
  - ORAL DISORDER [None]
  - PAIN IN JAW [None]
  - PALATAL DISORDER [None]
  - SENSITIVITY OF TEETH [None]
  - TREMOR [None]
